FAERS Safety Report 10241933 (Version 1)
Quarter: 2014Q2

REPORT INFORMATION
  Report Type: Spontaneous
  Country: DE (occurrence: DE)
  Receive Date: 20140617
  Receipt Date: 20140617
  Transmission Date: 20141212
  Serious: Yes (Other)
  Sender: FDA-Public Use
  Company Number: DE-VIIV HEALTHCARE LIMITED-D0084343A

PATIENT
  Age: 26 Year
  Sex: Male

DRUGS (2)
  1. TIVICAY [Suspect]
     Route: 048
  2. TRUVADA [Suspect]
     Route: 048

REACTIONS (3)
  - Kaposi^s sarcoma [Unknown]
  - Testicular swelling [Unknown]
  - Oedema peripheral [Unknown]
